FAERS Safety Report 5573378-3 (Version None)
Quarter: 2007Q4

REPORT INFORMATION
  Report Type: 
  Country: None (occurrence: None)
  Receive Date: 20071226
  Receipt Date: 20071212
  Transmission Date: 20080405
  Serious: Yes (Other)
  Sender: FDA-Public Use
  Company Number: JP-BRISTOL-MYERS SQUIBB COMPANY-14023329

PATIENT
  Age: 53 Year
  Sex: Male

DRUGS (6)
  1. EFAVIRENZ [Suspect]
     Indication: HIV INFECTION
     Dosage: 600MG:19JUN01-04SEO05;400MG:05SEP05-02OCT05;200MG:03OCT05-UNK
     Route: 048
     Dates: start: 20010619
  2. LAMIVUDINE [Suspect]
     Indication: HIV INFECTION
     Dosage: THERAPY WAS INTRUPPTED ON 23-OCT-2006 AND 150MG WAS RESTARTED ON 22-JAN-07
     Route: 048
     Dates: start: 19900427, end: 20070205
  3. TENOFOVIR DISOPROXIL FUMARATE [Suspect]
     Indication: HIV INFECTION
     Dosage: ANOTHER THERAPY:04-DEC-2006 TO UNK - 300 MG
     Route: 048
     Dates: start: 20040706, end: 20061023
  4. EMTRICITABINE [Suspect]
     Indication: HIV INFECTION
     Dosage: FORM = CAPSULE
     Route: 048
     Dates: start: 20070115, end: 20070119
  5. BEZAFIBRATE [Concomitant]
     Dosage: THERAPY DATES: 21-AUG-06 TO UNK;02-NOV-06 TO UNK
     Dates: start: 20060821
  6. PRAVASTATIN SODIUM [Concomitant]
     Dates: end: 20060619

REACTIONS (2)
  - HEPATIC STEATOSIS [None]
  - MYALGIA [None]
